FAERS Safety Report 6918323-0 (Version None)
Quarter: 2010Q3

REPORT INFORMATION
  Report Type: 
  Country: None (occurrence: None)
  Receive Date: 20100811
  Receipt Date: 20100802
  Transmission Date: 20110219
  Serious: Yes (Hospitalization)
  Sender: FDA-Public Use
  Company Number: US-BIOGENIDEC-2010BI026761

PATIENT
  Age: 44 Year
  Sex: Male

DRUGS (2)
  1. AVONEX [Suspect]
     Indication: MULTIPLE SCLEROSIS
     Route: 030
     Dates: start: 20000609, end: 20050322
  2. AVONEX [Suspect]
     Route: 030
     Dates: start: 20070325, end: 20080501

REACTIONS (7)
  - BACK DISORDER [None]
  - FLUID RETENTION [None]
  - HYPOTENSION [None]
  - JOINT DISLOCATION [None]
  - MULTI-ORGAN FAILURE [None]
  - MULTIPLE SCLEROSIS [None]
  - PNEUMONIA [None]
